FAERS Safety Report 15797320 (Version 3)
Quarter: 2019Q1

REPORT INFORMATION
  Report Type: Spontaneous
  Country: US (occurrence: US)
  Receive Date: 20190108
  Receipt Date: 20190123
  Transmission Date: 20190417
  Serious: No
  Sender: FDA-Public Use
  Company Number: US-PFIZER INC-2018536917

PATIENT
  Age: 2 Year
  Sex: Male
  Weight: 18.14 kg

DRUGS (4)
  1. TYLENOL [Suspect]
     Active Substance: ACETAMINOPHEN
     Indication: PYREXIA
     Dosage: UNK
  2. CHILDRENS ADVIL [Suspect]
     Active Substance: IBUPROFEN
     Indication: PYREXIA
     Dosage: 3 ML, EVERY 4 HRS
  3. CHILDRENS ADVIL [Suspect]
     Active Substance: IBUPROFEN
     Dosage: 8 ML, EVERY 4 HRS
  4. CHILDRENS ADVIL [Suspect]
     Active Substance: IBUPROFEN
     Dosage: 6 ML, EVERY 4 HRS

REACTIONS (2)
  - Drug ineffective [Recovered/Resolved]
  - Intentional product use issue [Unknown]
